FAERS Safety Report 4811110-9 (Version None)
Quarter: 2005Q4

REPORT INFORMATION
  Report Type: 
  Country: None (occurrence: None)
  Receive Date: 20051025
  Receipt Date: 20051010
  Transmission Date: 20060501
  Serious: Yes (Other)
  Sender: FDA-Public Use
  Company Number: 2005S1010005

PATIENT
  Age: 76 Year
  Sex: Male

DRUGS (4)
  1. APOMORPHINE HYDROCHLORIDE (APOMORPHINE HYDROCHLORIDE) [Suspect]
     Indication: PARKINSON'S DISEASE
     Dosage: 3 MG/HR; SUBCU
     Route: 058
  2. LEVODOPA/BENSERAZIDE HYDROCHLORIDE [Concomitant]
  3. ENTACAPONE [Concomitant]
  4. PERGOLIDE [Concomitant]

REACTIONS (4)
  - ABDOMINAL HAEMATOMA [None]
  - AKINESIA [None]
  - ANAEMIA [None]
  - INJECTION SITE NECROSIS [None]
